FAERS Safety Report 15010386 (Version 1)
Quarter: 2018Q2

REPORT INFORMATION
  Report Type: Spontaneous
  Country: US (occurrence: US)
  Receive Date: 20180521
  Receipt Date: 20180521
  Transmission Date: 20180711
  Serious: Yes (Hospitalization)
  Sender: FDA-Public Use
  Company Number: None

PATIENT
  Age: 68 Year
  Sex: Male

DRUGS (14)
  1. INSULIN ASPART [Concomitant]
     Active Substance: INSULIN ASPART
  2. METOPROLOL TARTRATE. [Concomitant]
     Active Substance: METOPROLOL TARTRATE
  3. CASPOFUNGIN [Concomitant]
     Active Substance: CASPOFUNGIN
  4. METFORMIN [Concomitant]
     Active Substance: METFORMIN HYDROCHLORIDE
  5. MULTIVITAMIN [Concomitant]
     Active Substance: VITAMINS
  6. IVIG [Suspect]
     Active Substance: HUMAN IMMUNOGLOBULIN G
     Indication: ANAEMIA
     Route: 042
     Dates: start: 20180316, end: 20180316
  7. ACYCLOVIR. [Concomitant]
     Active Substance: ACYCLOVIR
  8. ENOXAPARIN [Concomitant]
     Active Substance: ENOXAPARIN
  9. AZITHROMYCIN ANHYDROUS. [Concomitant]
     Active Substance: AZITHROMYCIN ANHYDROUS
  10. ENOXAPARIN [Concomitant]
     Active Substance: ENOXAPARIN
  11. FAMOTIDINE. [Concomitant]
     Active Substance: FAMOTIDINE
  12. DAPSONE. [Concomitant]
     Active Substance: DAPSONE
  13. PREDNISONE. [Concomitant]
     Active Substance: PREDNISONE
  14. FOLIC ACID. [Concomitant]
     Active Substance: FOLIC ACID

REACTIONS (4)
  - Haemoglobin decreased [None]
  - Abdominal wall haematoma [None]
  - Pyrexia [None]
  - Upper respiratory tract infection [None]

NARRATIVE: CASE EVENT DATE: 20180327
